FAERS Safety Report 12154625 (Version 1)
Quarter: 2016Q1

REPORT INFORMATION
  Report Type: Spontaneous
  Country: US (occurrence: None)
  Receive Date: 20160304
  Receipt Date: 20160304
  Transmission Date: 20160526
  Serious: Yes (Disabling, Other)
  Sender: FDA-Public Use
  Company Number: None

PATIENT
  Age: 79 Year
  Sex: Male
  Weight: 76.66 kg

DRUGS (3)
  1. PAMIDRONATE [Suspect]
     Active Substance: PAMIDRONATE DISODIUM
     Indication: PLASMA CELL MYELOMA
     Dosage: 60 MG ONLY GIVEN TWICE INTRAVENOUS
     Route: 042
     Dates: start: 20160205, end: 20160205
  2. DEXAMETHASONE. [Concomitant]
     Active Substance: DEXAMETHASONE
  3. REVLIMID [Concomitant]
     Active Substance: LENALIDOMIDE

REACTIONS (3)
  - Blindness unilateral [None]
  - Periorbital oedema [None]
  - Idiopathic orbital inflammation [None]

NARRATIVE: CASE EVENT DATE: 20160207
